FAERS Safety Report 8912598 (Version 1)
Quarter: 2012Q4

REPORT INFORMATION
  Report Type: Spontaneous
  Country: US (occurrence: None)
  Receive Date: 20121113
  Receipt Date: 20121113
  Transmission Date: 20130627
  Serious: Yes (Hospitalization)
  Sender: FDA-Public Use
  Company Number: B0842528A

PATIENT
  Age: 24 Year
  Sex: Male

DRUGS (1)
  1. PROPRANOLOL HYDROCHLORIDE [Suspect]
     Dosage: UNK  /  UNK  /  Oral
     Route: 048

REACTIONS (8)
  - Psychotic disorder [None]
  - Disorientation [None]
  - Agitation [None]
  - Mental status changes [None]
  - Tachycardia [None]
  - Hypertension [None]
  - Hyperhidrosis [None]
  - Mydriasis [None]
